FAERS Safety Report 10163853 (Version 2)
Quarter: 2014Q2

REPORT INFORMATION
  Report Type: Report from Study
  Country: DE (occurrence: DE)
  Receive Date: 20140509
  Receipt Date: 20140523
  Transmission Date: 20141212
  Serious: Yes (Hospitalization)
  Sender: FDA-Public Use
  Company Number: DE-ABBVIE-14P-062-1233542-00

PATIENT
  Age: 68 Year
  Sex: Male
  Weight: 106 kg

DRUGS (2)
  1. HUMIRA [Suspect]
     Indication: PSORIASIS
     Route: 058
     Dates: start: 20130523
  2. METHOTREXATE [Suspect]
     Indication: PSORIASIS
     Dates: start: 201112

REACTIONS (4)
  - Ingrowing nail [Recovered/Resolved]
  - Erysipelas [Recovered/Resolved]
  - Lymphangitis [Recovered/Resolved]
  - Infection [Recovered/Resolved]
